FAERS Safety Report 8014466-1 (Version None)
Quarter: 2011Q4

REPORT INFORMATION
  Report Type: 
  Country: None (occurrence: None)
  Receive Date: 20111229
  Receipt Date: 20111223
  Transmission Date: 20120403
  Serious: Yes (Congenital Anomaly, Other)
  Sender: FDA-Public Use
  Company Number: GXKR2011DE003675

PATIENT

DRUGS (2)
  1. RISPERIDONE [Suspect]
     Dosage: MATERNAL DOSE: 4 MG DAILY (GW6 TO 34.3)
     Route: 064
  2. ABILIFY [Concomitant]
     Dosage: MATERNAL DOSE: 15 MG DAILY (GW0 TO 6)
     Route: 064

REACTIONS (6)
  - CONGENITAL HYDRONEPHROSIS [None]
  - TRANSIENT TACHYPNOEA OF THE NEWBORN [None]
  - POLYCYTHAEMIA [None]
  - FOETAL EXPOSURE DURING PREGNANCY [None]
  - CONGENITAL URETERIC ANOMALY [None]
  - PREMATURE BABY [None]
